FAERS Safety Report 23644647 (Version 1)
Quarter: 2024Q1

REPORT INFORMATION
  Report Type: Spontaneous
  Country: US (occurrence: None)
  Receive Date: 20240317
  Receipt Date: 20240317
  Transmission Date: 20240410
  Serious: Yes (Other)
  Sender: FDA-Public Use
  Company Number: None

PATIENT
  Age: 62 Year
  Sex: Female
  Weight: 96.75 kg

DRUGS (13)
  1. ZEPBOUND [Suspect]
     Active Substance: TIRZEPATIDE
     Indication: Obesity
     Dates: start: 20240207, end: 20240208
  2. MONTELUKAST [Concomitant]
     Active Substance: MONTELUKAST SODIUM
  3. QVAR [Concomitant]
     Active Substance: BECLOMETHASONE DIPROPIONATE
  4. ALBUTEROL SULFATE [Concomitant]
  5. VITAMIN D3 [Concomitant]
     Active Substance: CHOLECALCIFEROL
  6. Gelsyn [Concomitant]
  7. ANASTROZOLE [Concomitant]
     Active Substance: ANASTROZOLE
  8. MAGNESIUM [Concomitant]
  9. Beet Root [Concomitant]
  10. HERBALS\TURMERIC [Concomitant]
     Active Substance: HERBALS\TURMERIC
  11. Blk Pepper Boswelia Serrata [Concomitant]
  12. FISH OIL [Concomitant]
     Active Substance: FISH OIL
  13. MELATONIN [Concomitant]
     Active Substance: MELATONIN

REACTIONS (7)
  - Peripheral swelling [None]
  - Myalgia [None]
  - Arthralgia [None]
  - Feeling abnormal [None]
  - Arthropathy [None]
  - Insomnia [None]
  - Inflammation [None]

NARRATIVE: CASE EVENT DATE: 20240207
